FAERS Safety Report 13416951 (Version 3)
Quarter: 2017Q2

REPORT INFORMATION
  Report Type: Report from Study
  Country: ES (occurrence: ES)
  Receive Date: 20170406
  Receipt Date: 20170626
  Transmission Date: 20170830
  Serious: Yes (Death, Hospitalization)
  Sender: FDA-Public Use
  Company Number: ES-EXELIXIS-XL18417008423

PATIENT
  Age: 66 Year
  Sex: Male
  Weight: 73 kg

DRUGS (9)
  1. RIFAXIMIN [Concomitant]
     Active Substance: RIFAXIMIN
  2. NALOXONE W/OXYCODONE [Concomitant]
     Active Substance: NALOXONE HYDROCHLORIDE\OXYCODONE HYDROCHLORIDE
  3. SPIRONOLACTONE. [Concomitant]
     Active Substance: SPIRONOLACTONE
  4. FUROSEMIDE. [Concomitant]
     Active Substance: FUROSEMIDE
  5. XL184 [Suspect]
     Active Substance: CABOZANTINIB
     Indication: HEPATOCELLULAR CARCINOMA
     Dosage: 60 MG, QD
     Route: 048
     Dates: start: 20170217, end: 20170226
  6. FOLIC ACID. [Concomitant]
     Active Substance: FOLIC ACID
  7. METOCLOPRAMIDE. [Concomitant]
     Active Substance: METOCLOPRAMIDE
  8. TENOFOVIR [Concomitant]
     Active Substance: TENOFOVIR
  9. MEGESTROL [Concomitant]
     Active Substance: MEGESTROL

REACTIONS (1)
  - Portal vein thrombosis [Fatal]

NARRATIVE: CASE EVENT DATE: 20170227
